FAERS Safety Report 19028022 (Version 1)
Quarter: 2021Q1

REPORT INFORMATION
  Report Type: Spontaneous
  Country: US (occurrence: US)
  Receive Date: 20210318
  Receipt Date: 20210318
  Transmission Date: 20210420
  Serious: No
  Sender: FDA-Public Use
  Company Number: US-CATALYST PHARMACEUTICALS, INC-2021CAT00073

PATIENT
  Age: 62 Year
  Sex: Male
  Weight: 149.69 kg

DRUGS (4)
  1. FIRDAPSE [Suspect]
     Active Substance: AMIFAMPRIDINE PHOSPHATE
     Indication: MYASTHENIC SYNDROME
     Dosage: 10 MG, 3X/DAY
     Dates: start: 20191030, end: 20210219
  2. LISINOPRIL. [Concomitant]
     Active Substance: LISINOPRIL
     Dosage: 10 MG, 1X/DAY
  3. DICLOFENAC [Concomitant]
     Active Substance: DICLOFENAC
     Dosage: UNK
  4. TALTZ [Concomitant]
     Active Substance: IXEKIZUMAB

REACTIONS (1)
  - Drug ineffective [Recovered/Resolved]

NARRATIVE: CASE EVENT DATE: 20191030
